FAERS Safety Report 5864102-5 (Version None)
Quarter: 2008Q3

REPORT INFORMATION
  Report Type: 
  Country: None (occurrence: None)
  Receive Date: 20080829
  Receipt Date: 20080819
  Transmission Date: 20090109
  Serious: Yes (Hospitalization)
  Sender: FDA-Public Use
  Company Number: IE-TYCO HEALTHCARE/MALLINCKRODT-T200800535

PATIENT

DRUGS (3)
  1. OPTIRAY 300 [Suspect]
     Indication: COMPUTERISED TOMOGRAM
     Dosage: 90 ML, SINGLE
     Route: 042
     Dates: start: 20080306, end: 20080306
  2. LOSEC                              /00661201/ [Concomitant]
     Dosage: 40 MG, QD
  3. DIOVAN                             /01319601/ [Concomitant]
     Dosage: 80 MG, QD

REACTIONS (2)
  - HYPOAESTHESIA ORAL [None]
  - OEDEMA MOUTH [None]
